FAERS Safety Report 10140519 (Version 2)
Quarter: 2014Q2

REPORT INFORMATION
  Report Type: Spontaneous
  Country: US (occurrence: US)
  Receive Date: 20140429
  Receipt Date: 20140515
  Transmission Date: 20141212
  Serious: No
  Sender: FDA-Public Use
  Company Number: US-009507513-1404USA012137

PATIENT
  Age: 41 Year
  Sex: Female
  Weight: 68.27 kg

DRUGS (1)
  1. CLARITIN REDITABS 12HR [Suspect]
     Indication: SEASONAL ALLERGY
     Dosage: 5 MG, UNKNOWN
     Route: 048
     Dates: start: 201404

REACTIONS (3)
  - Fatigue [Recovered/Resolved]
  - Somnolence [Recovered/Resolved]
  - Drug ineffective [Unknown]
